FAERS Safety Report 15308625 (Version 1)
Quarter: 2018Q3

REPORT INFORMATION
  Report Type: Spontaneous
  Country: US (occurrence: US)
  Receive Date: 20180822
  Receipt Date: 20180822
  Transmission Date: 20181010
  Serious: No
  Sender: FDA-Public Use
  Company Number: US-OSMOTICA_PHARMACEUTICAL_US_LLC-POI0573201800154

PATIENT
  Age: 17 Year
  Sex: Female

DRUGS (4)
  1. XOPENEX [Concomitant]
     Active Substance: LEVALBUTEROL HYDROCHLORIDE
  2. AMITRYPTILINE [Concomitant]
     Active Substance: AMITRIPTYLINE
  3. METHYLPHENIDATE HYDROCHLORIDE EXTENDED?RELEASE TABLETS [Suspect]
     Active Substance: METHYLPHENIDATE HYDROCHLORIDE
     Dates: start: 20180202
  4. QVAR [Concomitant]
     Active Substance: BECLOMETHASONE DIPROPIONATE

REACTIONS (1)
  - Energy increased [Unknown]

NARRATIVE: CASE EVENT DATE: 20180202
